FAERS Safety Report 5814676-5 (Version None)
Quarter: 2008Q3

REPORT INFORMATION
  Report Type: 
  Country: None (occurrence: None)
  Receive Date: 20080718
  Receipt Date: 20080303
  Transmission Date: 20090109
  Serious: No
  Sender: FDA-Public Use
  Company Number: US-KINGPHARMUSA00001-K200800276

PATIENT

DRUGS (1)
  1. LEVOXYL [Suspect]
     Indication: THYROIDECTOMY

REACTIONS (5)
  - FATIGUE [None]
  - GENERAL PHYSICAL HEALTH DETERIORATION [None]
  - HEPATIC ENZYME ABNORMAL [None]
  - WEIGHT INCREASED [None]
  - WEIGHT LOSS POOR [None]
